FAERS Safety Report 9563625 (Version 1)
Quarter: 2013Q1

REPORT INFORMATION
  Report Type: Spontaneous
  Country: US (occurrence: None)
  Receive Date: 20121227
  Receipt Date: 20121227
  Transmission Date: 20140127
  Serious: Yes (Other)
  Sender: FDA-Public Use
  Company Number: PHEH2012US003016

PATIENT
  Age: 84 Year
  Sex: Male
  Weight: 92.3 kg

DRUGS (6)
  1. EXJADE [Suspect]
     Indication: HAEMOCHROMATOSIS
     Route: 048
     Dates: start: 20111215, end: 20120126
  2. METOPROLOL (METOPROLOL) [Concomitant]
  3. SIMVASTATIN (SIMVASTATIN) [Concomitant]
  4. ASA (ACETYLSALICYLIC ACID) [Concomitant]
  5. PRILOSEC [Concomitant]
  6. OMEGA 3 FISH OIL (FISH OIL) [Concomitant]

REACTIONS (5)
  - Liver function test abnormal [None]
  - Renal function test abnormal [None]
  - Alanine aminotransferase increased [None]
  - Aspartate aminotransferase increased [None]
  - Blood creatinine increased [None]
